FAERS Safety Report 10594903 (Version 2)
Quarter: 2014Q4

REPORT INFORMATION
  Report Type: Spontaneous
  Country: US (occurrence: US)
  Receive Date: 20141120
  Receipt Date: 20141120
  Transmission Date: 20150529
  Serious: Yes (Other)
  Sender: FDA-Public Use
  Company Number: US-ROCHE-1487016

PATIENT
  Age: 59 Year
  Sex: Female
  Weight: 72.64 kg

DRUGS (9)
  1. XOLAIR [Suspect]
     Active Substance: OMALIZUMAB
     Indication: ASTHMA
     Route: 058
     Dates: start: 201406
  2. PREDNISONE. [Concomitant]
     Active Substance: PREDNISONE
     Indication: URTICARIA
     Route: 048
  3. TESSALON [Concomitant]
     Active Substance: BENZONATATE
     Indication: COUGH
     Route: 048
     Dates: start: 201408
  4. VENTOLIN [Concomitant]
     Active Substance: ALBUTEROL SULFATE
     Indication: COUGH
     Route: 065
     Dates: start: 201106
  5. XOLAIR [Suspect]
     Active Substance: OMALIZUMAB
     Indication: URTICARIA
     Route: 058
     Dates: start: 20140716, end: 20140818
  6. ATARAX [Concomitant]
     Active Substance: HYDROXYZINE\HYDROXYZINE HYDROCHLORIDE
     Indication: URTICARIA
     Dosage: 50-100 MG
     Route: 048
     Dates: start: 201305
  7. VENTOLIN [Concomitant]
     Active Substance: ALBUTEROL SULFATE
     Indication: DYSPNOEA
  8. XOPENEX [Concomitant]
     Active Substance: LEVALBUTEROL HYDROCHLORIDE
     Indication: COUGH
     Route: 065
     Dates: start: 201106
  9. XOPENEX [Concomitant]
     Active Substance: LEVALBUTEROL HYDROCHLORIDE
     Indication: DYSPNOEA

REACTIONS (4)
  - Swelling [Unknown]
  - Hypersensitivity [Unknown]
  - Urticaria [Recovered/Resolved]
  - Oesophageal pain [Unknown]

NARRATIVE: CASE EVENT DATE: 20140818
